FAERS Safety Report 21964770 (Version 14)
Quarter: 2025Q2

REPORT INFORMATION
  Report Type: Report from Study
  Country: DE (occurrence: DE)
  Receive Date: 20230207
  Receipt Date: 20250509
  Transmission Date: 20250716
  Serious: Yes (Death, Life-Threatening, Hospitalization, Other)
  Sender: TAKEDA
  Company Number: DE-JNJFOC-20230164704

PATIENT
  Age: 72 Year
  Sex: Male
  Weight: 65 kg

DRUGS (33)
  1. BORTEZOMIB [Suspect]
     Active Substance: BORTEZOMIB
     Indication: Plasma cell myeloma
  2. BORTEZOMIB [Suspect]
     Active Substance: BORTEZOMIB
     Indication: Drug therapy
     Dates: start: 20221228, end: 20230101
  3. BORTEZOMIB [Suspect]
     Active Substance: BORTEZOMIB
  4. BORTEZOMIB [Suspect]
     Active Substance: BORTEZOMIB
     Dates: start: 20230224, end: 20230224
  5. BORTEZOMIB [Suspect]
     Active Substance: BORTEZOMIB
     Dates: start: 20230228, end: 20230228
  6. DEXAMETHASONE [Suspect]
     Active Substance: DEXAMETHASONE
     Indication: Sepsis
  7. DEXAMETHASONE [Suspect]
     Active Substance: DEXAMETHASONE
     Indication: Product used for unknown indication
     Dates: start: 20230320, end: 20230320
  8. DARZALEX [Suspect]
     Active Substance: DARATUMUMAB
     Indication: Plasma cell myeloma
  9. DARZALEX [Suspect]
     Active Substance: DARATUMUMAB
     Indication: Drug therapy
  10. DARZALEX [Suspect]
     Active Substance: DARATUMUMAB
  11. DARZALEX [Suspect]
     Active Substance: DARATUMUMAB
     Dates: start: 20230224, end: 20230224
  12. DARZALEX [Suspect]
     Active Substance: DARATUMUMAB
     Dates: start: 20230228, end: 20230228
  13. CARFILZOMIB [Suspect]
     Active Substance: CARFILZOMIB
     Indication: Plasma cell myeloma
  14. CARFILZOMIB [Suspect]
     Active Substance: CARFILZOMIB
  15. ETOPOSIDE [Suspect]
     Active Substance: ETOPOSIDE
     Indication: Plasma cell myeloma
  16. ETOPOSIDE [Suspect]
     Active Substance: ETOPOSIDE
  17. DOXORUBICIN [Suspect]
     Active Substance: DOXORUBICIN
     Indication: Plasma cell myeloma
  18. DOXORUBICIN [Suspect]
     Active Substance: DOXORUBICIN
     Indication: Salvage therapy
     Dates: start: 20221229, end: 20221231
  19. DOXORUBICIN [Suspect]
     Active Substance: DOXORUBICIN
     Indication: Plasma cell myeloma
  20. CYCLOPHOSPHAMIDE [Suspect]
     Active Substance: CYCLOPHOSPHAMIDE
     Indication: Plasma cell myeloma
     Dates: start: 20221229, end: 20221231
  21. CYCLOPHOSPHAMIDE [Suspect]
     Active Substance: CYCLOPHOSPHAMIDE
     Indication: Salvage therapy
  22. CYCLOPHOSPHAMIDE [Suspect]
     Active Substance: CYCLOPHOSPHAMIDE
     Indication: Plasma cell myeloma
  23. THALIDOMIDE [Suspect]
     Active Substance: THALIDOMIDE
     Indication: Product used for unknown indication
  24. POMALIDOMIDE [Suspect]
     Active Substance: POMALIDOMIDE
     Indication: Product used for unknown indication
  25. POMALIDOMIDE [Suspect]
     Active Substance: POMALIDOMIDE
  26. TECLISTAMAB [Suspect]
     Active Substance: TECLISTAMAB
     Indication: Product used for unknown indication
  27. MELPHALAN [Suspect]
     Active Substance: MELPHALAN
     Indication: Overdose
     Dates: start: 20230310, end: 20230311
  28. ACYCLOVIR [Concomitant]
     Active Substance: ACYCLOVIR
     Indication: Sepsis
     Dates: start: 20230320, end: 20230322
  29. MEROPENEM [Concomitant]
     Active Substance: MEROPENEM
     Indication: Bacterial infection
  30. MEROPENEM [Concomitant]
     Active Substance: MEROPENEM
     Indication: Sepsis
     Dates: start: 20230321, end: 20230322
  31. MEROPENEM [Concomitant]
     Active Substance: MEROPENEM
     Indication: Febrile bone marrow aplasia
  32. PIPERACILLIN [Concomitant]
     Active Substance: PIPERACILLIN
     Indication: Sepsis
     Dates: start: 20230320, end: 20230321
  33. TAZOBACTAM [Concomitant]
     Active Substance: TAZOBACTAM
     Indication: Sepsis
     Dates: start: 20230320, end: 20230321

REACTIONS (15)
  - Bone marrow failure [Fatal]
  - Bacterial sepsis [Fatal]
  - Multiple organ dysfunction syndrome [Fatal]
  - Sepsis [Fatal]
  - Febrile bone marrow aplasia [Recovered/Resolved]
  - Disturbance in attention [Recovered/Resolved]
  - Device related sepsis [Recovered/Resolved]
  - Depressed level of consciousness [Unknown]
  - General physical health deterioration [Unknown]
  - Pulmonary oedema [Recovered/Resolved]
  - Renal failure [Not Recovered/Not Resolved]
  - Pneumonia [Unknown]
  - Hypertension [Not Recovered/Not Resolved]
  - Tachypnoea [Recovered/Resolved]
  - Tachycardia [Unknown]

NARRATIVE: CASE EVENT DATE: 20221218
